FAERS Safety Report 24421982 (Version 1)
Quarter: 2024Q4

REPORT INFORMATION
  Report Type: Spontaneous
  Country: US (occurrence: US)
  Receive Date: 20241010
  Receipt Date: 20241010
  Transmission Date: 20250114
  Serious: Yes (Life-Threatening, Hospitalization, Other)
  Sender: STERISCIENCE PTE
  Company Number: US-STERISCIENCE B.V.-2024-ST-001593

PATIENT
  Age: 58 Year
  Sex: Female

DRUGS (4)
  1. VANCOMYCIN [Suspect]
     Active Substance: VANCOMYCIN
     Indication: Antibiotic therapy
     Dosage: UNK
     Route: 065
  2. CEFEPIME [Suspect]
     Active Substance: CEFEPIME HYDROCHLORIDE
     Indication: Antibiotic therapy
     Dosage: UNK
     Route: 065
  3. VORICONAZOLE [Suspect]
     Active Substance: VORICONAZOLE
     Indication: Aspergillus infection
     Dosage: UNK
     Route: 065
  4. CLADRIBINE [Concomitant]
     Active Substance: CLADRIBINE
     Indication: Hairy cell leukaemia
     Dosage: UNK
     Route: 065

REACTIONS (4)
  - Condition aggravated [Unknown]
  - Infarction [Unknown]
  - Pneumonia bacterial [Unknown]
  - Drug ineffective [Unknown]
